FAERS Safety Report 12489378 (Version 1)
Quarter: 2016Q2

REPORT INFORMATION
  Report Type: Spontaneous
  Country: CH (occurrence: BR)
  Receive Date: 20160622
  Receipt Date: 20160622
  Transmission Date: 20160815
  Serious: Yes (Hospitalization)
  Sender: FDA-Public Use
  Company Number: CH-LPDUSPRD-20160543

PATIENT
  Age: 46 Year
  Sex: Female

DRUGS (1)
  1. FERINJECT [Suspect]
     Active Substance: FERRIC CARBOXYMALTOSE
     Dosage: DOSE NOT PROVIDED
     Route: 042
     Dates: end: 2015

REACTIONS (2)
  - Hospitalisation [Unknown]
  - Adverse event [Unknown]

NARRATIVE: CASE EVENT DATE: 201606
